FAERS Safety Report 5967468-0 (Version None)
Quarter: 2008Q4

REPORT INFORMATION
  Report Type: 
  Country: None (occurrence: None)
  Receive Date: 20081125
  Receipt Date: 20081114
  Transmission Date: 20090506
  Serious: Yes (Other)
  Sender: FDA-Public Use
  Company Number: FR-PFIZER INC-2008097137

PATIENT
  Age: 34 Year
  Sex: Male

DRUGS (7)
  1. LYRICA [Suspect]
     Indication: PHANTOM PAIN
     Dates: end: 20081101
  2. TRAMADOL HYDROCHLORIDE AND ACETAMINOPHEN [Concomitant]
  3. SERTRALINE HYDROCHLORIDE [Concomitant]
     Dosage: DAILY DOSE:50MG
  4. NEXIUM [Concomitant]
     Dosage: DAILY DOSE:20MG
  5. TARDYFERON [Concomitant]
  6. FLECTOR [Concomitant]
  7. LOCOID [Concomitant]

REACTIONS (1)
  - HAEMANGIOMA OF LIVER [None]
